FAERS Safety Report 5006702-0 (Version None)
Quarter: 2006Q2

REPORT INFORMATION
  Report Type: 
  Country: None (occurrence: None)
  Receive Date: 20060519
  Receipt Date: 20060507
  Transmission Date: 20061013
  Serious: Yes (Other)
  Sender: FDA-Public Use
  Company Number: GR-BRISTOL-MYERS SQUIBB COMPANY-13372834

PATIENT
  Age: 29 Year
  Sex: Female

DRUGS (3)
  1. ABILIFY [Suspect]
     Indication: DELUSION
     Dosage: INTERRUPTED FOR 1 DAY AND REINTRODUCED AT 7.5 MG DAILY
     Route: 048
  2. LADOSE [Concomitant]
     Dosage: REDUCED TO 1 TAB DAILY
     Route: 048
  3. TOPAMAC [Concomitant]

REACTIONS (1)
  - ELECTROCARDIOGRAM QT SHORTENED [None]
